FAERS Safety Report 9561133 (Version 3)
Quarter: 2014Q1

REPORT INFORMATION
  Report Type: Spontaneous
  Country: US (occurrence: US)
  Receive Date: 20130927
  Receipt Date: 20140206
  Transmission Date: 20141002
  Serious: Yes (Other)
  Sender: FDA-Public Use
  Company Number: US-UCBSA-098037

PATIENT
  Age: 54 Year
  Sex: Female
  Weight: 86.36 kg

DRUGS (12)
  1. CIMZIA [Suspect]
     Indication: RHEUMATOID ARTHRITIS
     Dosage: UNKNOWN DOSE
     Dates: start: 2010
  2. CIMZIA [Suspect]
     Indication: RHEUMATOID ARTHRITIS
     Dates: start: 2012, end: 201303
  3. CIMZIA [Suspect]
     Indication: RHEUMATOID ARTHRITIS
     Dates: start: 20130713, end: 20130908
  4. ALLEGRA [Concomitant]
     Indication: SEASONAL ALLERGY
     Dosage: UNKNOWN
  5. WELLBUTRIN [Concomitant]
     Indication: ANXIETY
     Dosage: DOSE: 200MG
  6. NEXIUM [Concomitant]
     Dosage: UNKNOWN
  7. VITAMINE C [Concomitant]
     Dosage: UNKNOWN
  8. VITAMINE B [Concomitant]
     Dosage: UNKNOWN
  9. MAGNESIUM [Concomitant]
     Dosage: UNKNOWN
  10. ASA [Concomitant]
     Dosage: DOSE:81 MG
  11. VALTREX [Concomitant]
     Dosage: DOSE:1GM
  12. EVENING PRIMROSE [Concomitant]
     Indication: HOT FLUSH
     Dosage: UNKNOWN

REACTIONS (2)
  - Psoriasis [Recovered/Resolved]
  - Gait disturbance [Unknown]
